FAERS Safety Report 5536937-X (Version None)
Quarter: 2007Q4

REPORT INFORMATION
  Report Type: 
  Country: None (occurrence: None)
  Receive Date: 20071207
  Receipt Date: 20071128
  Transmission Date: 20080405
  Serious: Yes (Other)
  Sender: FDA-Public Use
  Company Number: PHHO2007VE08530

PATIENT
  Age: 81 Year
  Sex: Female

DRUGS (6)
  1. DIOVAN AMLO [Suspect]
     Indication: HYPERTENSION
     Dosage: 80/5MG ONCE DAILY
     Route: 048
  2. CORAZEM [Concomitant]
     Dosage: 120 MG, UNK
  3. LANITOP [Concomitant]
     Dosage: 0.6 MG, UNK
  4. VASTAREL [Concomitant]
  5. NEBIVOLOL [Concomitant]
     Dosage: 5 MG, UNK
  6. ACETYLSALICYLIC ACID SRT [Concomitant]
     Dosage: 81 MG, UNK

REACTIONS (1)
  - OEDEMA PERIPHERAL [None]
